FAERS Safety Report 6536469-6 (Version None)
Quarter: 2010Q1

REPORT INFORMATION
  Report Type: 
  Country: None (occurrence: None)
  Receive Date: 20100113
  Receipt Date: 20100104
  Transmission Date: 20100710
  Serious: No
  Sender: FDA-Public Use
  Company Number: US-B.I. PHARMACEUTICALS,INC./RIDGEFIELD-2009-BP-13992BP

PATIENT
  Age: 67 Year
  Sex: Male

DRUGS (11)
  1. COMBIVENT [Suspect]
     Indication: CHRONIC OBSTRUCTIVE PULMONARY DISEASE
     Dosage: 10 PUF
     Route: 055
     Dates: start: 19980101
  2. PLAVIX [Concomitant]
     Indication: CARDIAC DISORDER
  3. ASPIRIN [Concomitant]
  4. NIFEDIPINE [Concomitant]
     Indication: HYPERTENSION
  5. LISINOPRIL [Concomitant]
  6. TOPROL-XL [Concomitant]
  7. HYDROCHLOROTHIAZIDE [Concomitant]
  8. CRESTOR [Concomitant]
  9. INDOCIN [Concomitant]
  10. PROVENTIL [Concomitant]
     Dosage: 8 PUF
  11. PATANOL [Concomitant]

REACTIONS (3)
  - HYPERTENSION [None]
  - OROPHARYNGEAL PAIN [None]
  - THROAT IRRITATION [None]
